FAERS Safety Report 18485508 (Version 1)
Quarter: 2020Q4

REPORT INFORMATION
  Report Type: Spontaneous
  Country: US (occurrence: US)
  Receive Date: 20201110
  Receipt Date: 20201110
  Transmission Date: 20210114
  Serious: No
  Sender: FDA-Public Use
  Company Number: None

PATIENT
  Age: 73 Year
  Sex: Male
  Weight: 63.77 kg

DRUGS (1)
  1. QUETIAPINE. [Suspect]
     Active Substance: QUETIAPINE
     Dates: end: 20200917

REACTIONS (8)
  - Tremor [None]
  - Dyskinesia [None]
  - Fall [None]
  - Insomnia [None]
  - Therapy non-responder [None]
  - Irritability [None]
  - Mania [None]
  - Muscle tightness [None]

NARRATIVE: CASE EVENT DATE: 20200915
